FAERS Safety Report 18656448 (Version 2)
Quarter: 2021Q1

REPORT INFORMATION
  Report Type: Spontaneous
  Country: US (occurrence: US)
  Receive Date: 20201223
  Receipt Date: 20210122
  Transmission Date: 20210419
  Serious: Yes (Death, Other)
  Sender: FDA-Public Use
  Company Number: US-PURDUE-USA-2020-0179945

PATIENT
  Age: 56 Year
  Sex: Male

DRUGS (8)
  1. MORPHINE SULFATE EXTENDED?RELEASE TABLETS (RHODES 74?769, 74?862) [Suspect]
     Active Substance: MORPHINE SULFATE
     Dosage: 2 MG, UNK
     Route: 041
  2. OXYCODONE HCL TABLETS (RHODES 91?490) [Suspect]
     Active Substance: OXYCODONE HYDROCHLORIDE
     Indication: PAIN
     Dosage: UNK UNK, PRN (1?2 TABLET EVERY 4 HR OR AS NEEDED)
     Route: 048
  3. DILAUDID [Suspect]
     Active Substance: HYDROMORPHONE HYDROCHLORIDE
     Dosage: 1 MG, UNK
     Route: 041
  4. MS CONTIN [Suspect]
     Active Substance: MORPHINE SULFATE
     Indication: PRODUCT USED FOR UNKNOWN INDICATION
     Dosage: UNK
     Route: 048
  5. DILAUDID [Suspect]
     Active Substance: HYDROMORPHONE HYDROCHLORIDE
     Indication: PAIN
     Dosage: 1 DF, PRN (4?6 HR)
     Route: 048
  6. MORPHINE SULFATE EXTENDED?RELEASE TABLETS (RHODES 74?769, 74?862) [Suspect]
     Active Substance: MORPHINE SULFATE
     Indication: PRODUCT USED FOR UNKNOWN INDICATION
     Dosage: UNK
     Route: 048
  7. OXYCODONE HYDROCHLORIDE (SIMILAR TO NDA 22?272) [Suspect]
     Active Substance: OXYCODONE HYDROCHLORIDE
     Indication: PRODUCT USED FOR UNKNOWN INDICATION
     Dosage: UNK
     Route: 065
  8. HYDROMORPHONE TABLETS [Suspect]
     Active Substance: HYDROMORPHONE
     Indication: PAIN
     Dosage: 2 MG, PRN (4?6 HR)
     Route: 048

REACTIONS (50)
  - Dehydration [Unknown]
  - Insomnia [Unknown]
  - Nausea [Unknown]
  - Sexual dysfunction [Unknown]
  - Gastrointestinal motility disorder [Unknown]
  - Abdominal discomfort [Unknown]
  - Discomfort [Unknown]
  - Visual impairment [Unknown]
  - Affect lability [Unknown]
  - Vomiting [Unknown]
  - Cough [Unknown]
  - Biliary colic [Unknown]
  - Balance disorder [Unknown]
  - Dizziness [Unknown]
  - Pyrexia [Unknown]
  - Abdominal distension [Unknown]
  - Dyspnoea [Unknown]
  - Headache [Unknown]
  - Dry mouth [Unknown]
  - Abdominal pain upper [Unknown]
  - Hallucination [Unknown]
  - Thinking abnormal [Unknown]
  - Hypoacusis [Unknown]
  - Muscle spasms [Unknown]
  - Asthenia [Unknown]
  - Tinnitus [Unknown]
  - Respiratory depression [Unknown]
  - Constipation [Unknown]
  - Gait disturbance [Unknown]
  - Libido decreased [Unknown]
  - Somnolence [Unknown]
  - Neck pain [Unknown]
  - Erythema [Unknown]
  - Oesophageal adenocarcinoma stage III [Fatal]
  - Hyperhidrosis [Unknown]
  - Loss of consciousness [Unknown]
  - Abnormal behaviour [Unknown]
  - Swelling [Unknown]
  - Coordination abnormal [Unknown]
  - Chills [Unknown]
  - Chest pain [Unknown]
  - Abdominal pain [Unknown]
  - Tremor [Unknown]
  - Early satiety [Unknown]
  - Fatigue [Unknown]
  - Decreased appetite [Unknown]
  - Heart rate increased [Unknown]
  - Depression [Unknown]
  - Confusional state [Unknown]
  - Night sweats [Unknown]

NARRATIVE: CASE EVENT DATE: 20151217
